FAERS Safety Report 7327199-1 (Version None)
Quarter: 2011Q1

REPORT INFORMATION
  Report Type: 
  Country: None (occurrence: None)
  Receive Date: 20110302
  Receipt Date: 20110224
  Transmission Date: 20110831
  Serious: Yes (Other)
  Sender: FDA-Public Use
  Company Number: US-PFIZER INC-2011041228

PATIENT
  Sex: Female

DRUGS (2)
  1. PREMARIN [Suspect]
     Indication: ATROPHIC VULVOVAGINITIS
     Dosage: 0.625 MG, 1X/DAY
     Route: 048
     Dates: start: 19950101
  2. PREMARIN [Suspect]
     Dosage: UNK
     Route: 067
     Dates: start: 19950101

REACTIONS (3)
  - SKIN ATROPHY [None]
  - GASTROINTESTINAL CARCINOMA [None]
  - SKIN BURNING SENSATION [None]
